FAERS Safety Report 7603780 (Version 12)
Quarter: 2015Q3

REPORT INFORMATION
  Report Type: Report from Study
  Country: FR (occurrence: FR)
  Receive Date: 20100923
  Receipt Date: 20150925
  Transmission Date: 20151125
  Serious: Yes (Life-Threatening, Hospitalization, Other)
  Sender: FDA-Public Use
  Company Number: FR-GILEAD-2010-0031976

PATIENT
  Age: 55 Year
  Sex: Female
  Weight: 65 kg

DRUGS (14)
  1. AMOXICILLIN AND CLAVULANATE POTASSIUM [Suspect]
     Active Substance: AMOXICILLIN\CLAVULANATE POTASSIUM
     Indication: PYREXIA
     Route: 065
     Dates: start: 20100907, end: 20100911
  2. TENOFOVIR DISOPROXIL FUMARATE. [Suspect]
     Active Substance: TENOFOVIR DISOPROXIL FUMARATE
     Indication: HIV INFECTION
     Dosage: 245 MG, QD
     Route: 065
     Dates: start: 20100803, end: 20100920
  3. LAMIVUDINE. [Suspect]
     Active Substance: LAMIVUDINE
     Route: 065
     Dates: start: 20100803, end: 20100920
  4. CEFIXIME. [Suspect]
     Active Substance: CEFIXIME
     Indication: PYREXIA
     Route: 065
     Dates: start: 20100911, end: 20100918
  5. RALTEGRAVIR. [Suspect]
     Active Substance: RALTEGRAVIR
     Indication: HIV INFECTION
     Route: 065
     Dates: start: 20100803, end: 20100920
  6. RALTEGRAVIR. [Suspect]
     Active Substance: RALTEGRAVIR
     Route: 065
     Dates: start: 20101112
  7. LANZOPRAZOL [Suspect]
     Active Substance: LANSOPRAZOLE
     Indication: PROPHYLAXIS
     Route: 065
     Dates: start: 2010, end: 20100920
  8. ISONIAZID. [Suspect]
     Active Substance: ISONIAZID
     Indication: TUBERCULOSIS
     Route: 065
     Dates: start: 20100628, end: 20100920
  9. TRAMADOL. [Suspect]
     Active Substance: TRAMADOL
     Route: 065
     Dates: start: 2010, end: 20100920
  10. ASPIRIN. [Suspect]
     Active Substance: ASPIRIN
     Indication: PROPHYLAXIS
     Route: 065
     Dates: start: 2010, end: 20100920
  11. ATORVASTATIN [Suspect]
     Active Substance: ATORVASTATIN
     Indication: PROPHYLAXIS
     Route: 065
     Dates: start: 2010, end: 20100920
  12. CHONDROITIN SULFATE [Suspect]
     Active Substance: SODIUM CHONDROITIN SULFATE
     Indication: PROPHYLAXIS
     Route: 065
     Dates: start: 2010, end: 20100920
  13. RIFAMPICINE [Suspect]
     Active Substance: RIFAMPIN
     Route: 065
     Dates: start: 20100628, end: 20100920
  14. TRUVADA [Concomitant]
     Active Substance: EMTRICITABINE\TENOFOVIR DISOPROXIL FUMARATE
     Indication: HIV INFECTION
     Route: 065
     Dates: start: 20101112

REACTIONS (6)
  - Prothrombin time shortened [Unknown]
  - Aspartate aminotransferase increased [Unknown]
  - Pyrexia [Unknown]
  - Hepatitis fulminant [Recovered/Resolved with Sequelae]
  - Encephalopathy [Unknown]
  - Alanine aminotransferase increased [Unknown]

NARRATIVE: CASE EVENT DATE: 20100911
